FAERS Safety Report 9631955 (Version 1)
Quarter: 2013Q4

REPORT INFORMATION
  Report Type: Spontaneous
  Country: GB (occurrence: None)
  Receive Date: 20131015
  Receipt Date: 20131015
  Transmission Date: 20140711
  Serious: No
  Sender: FDA-Public Use
  Company Number: GB2103K3776SPO

PATIENT
  Sex: Female

DRUGS (11)
  1. LANSOPRAZOLE GENERIC (LANSOPRAZOLE) UNKNOWN [Suspect]
  2. TOPAMAX [Suspect]
     Dosage: 1X PER DAY
     Route: 048
  3. ALFACALCIDOL (VITAMIN D, VITAMIN D SUBSTANCE) [Concomitant]
  4. ATORVASTATIN (ATORVASTATIN) [Concomitant]
  5. BISOPROLOL (BISOPROLOL) [Concomitant]
  6. CITALOPRAM (CITALOPRAM) [Concomitant]
  7. FUROSEMIDE (FRUSEMIDE) [Concomitant]
  8. GLUCOPHAGE (METFORMIN HYDROCHLORIDE) [Concomitant]
  9. LEVOTHYROXINE (LEVOTHYROXINE) [Concomitant]
  10. SITAGLIPTIN (SITAGLIPTIN) [Concomitant]
  11. XARELTO (RIVAROXABAN) [Concomitant]

REACTIONS (12)
  - Atrial fibrillation [None]
  - Hypertension [None]
  - Diarrhoea [None]
  - Dry mouth [None]
  - Gastric disorder [None]
  - Myalgia [None]
  - Hypoaesthesia [None]
  - Paraesthesia [None]
  - Poor quality drug administered [None]
  - Dyspnoea [None]
  - Candida infection [None]
  - Urticaria [None]
